FAERS Safety Report 24428661 (Version 1)
Quarter: 2024Q4

REPORT INFORMATION
  Report Type: Spontaneous
  Country: US (occurrence: US)
  Receive Date: 20241011
  Receipt Date: 20241011
  Transmission Date: 20250115
  Serious: Yes (Hospitalization, Other)
  Sender: FRESENIUS KABI
  Company Number: US-FreseniusKabi-FK202414921

PATIENT
  Age: 47 Year
  Sex: Male
  Weight: 72.3 kg

DRUGS (4)
  1. LEUCOVORIN CALCIUM [Suspect]
     Active Substance: LEUCOVORIN CALCIUM
     Indication: HER2 positive colorectal cancer
     Dosage: FORM: SOLUTION FOR INFUSION?400 MG/M2, EVERY 2 WEEKS ON DAYS 1,15 AND 29 OF EACH 6-WEEK CYCLE, INTRA
     Dates: start: 20240910, end: 20240927
  2. FLUOROURACIL [Suspect]
     Active Substance: FLUOROURACIL
     Indication: HER2 positive colorectal cancer
     Dosage: FORM : SOLUTION FOR INFUSION?ROUTE: IV BOLUS?400 MG/M2, 400 MG/M2 (IV BOLUS) THEN 5-FLUOROURACIL 240
     Dates: start: 20240910, end: 20240927
  3. BEVACIZUMAB [Suspect]
     Active Substance: BEVACIZUMAB
     Indication: HER2 positive colorectal cancer
     Dosage: FORM : SOLUTION FOR INFUSION?5 MG/KG, EVERY 2 WEEKS (DAYS 1, 15, AND 29 OF EACH 6-WEEK CYCLE), INTRA
     Dates: start: 20240910, end: 20240927
  4. OXALIPLATIN [Suspect]
     Active Substance: OXALIPLATIN
     Indication: HER2 positive colorectal cancer
     Dosage: 85 MG/M2, EVERY 2 WEEKS ON DAYS 1,15 AND 29 OF EACH 6-WEEK CYCLE, INTRAVENOUS?FORM: POWDER FOR SOLUT
     Dates: start: 20240910, end: 20240927

REACTIONS (6)
  - Abdominal pain [Recovered/Resolved]
  - Stoma prolapse [Recovered/Resolved]
  - Stoma site haemorrhage [Recovered/Resolved]
  - Stoma site discharge [Recovered/Resolved]
  - Abdominal distension [Recovered/Resolved]
  - Diarrhoea [Recovered/Resolved]

NARRATIVE: CASE EVENT DATE: 20240920
